FAERS Safety Report 8254951-0 (Version None)
Quarter: 2012Q1

REPORT INFORMATION
  Report Type: 
  Country: None (occurrence: None)
  Receive Date: 20120329
  Receipt Date: 20120314
  Transmission Date: 20120608
  Serious: Yes (Death)
  Sender: FDA-Public Use
  Company Number: 2012-124

PATIENT
  Age: 57 Year
  Sex: Male

DRUGS (4)
  1. REMERON [Concomitant]
  2. FAZACLO ODT [Suspect]
     Dosage: 25 - 150 MG, QD, ORAL
     Route: 048
     Dates: start: 20111024, end: 20120222
  3. TEMAZEPAM [Concomitant]
  4. LAMICTAL [Concomitant]

REACTIONS (1)
  - DEATH [None]
